FAERS Safety Report 12432362 (Version 2)
Quarter: 2016Q2

REPORT INFORMATION
  Report Type: Spontaneous
  Country: VE (occurrence: VE)
  Receive Date: 20160603
  Receipt Date: 20160621
  Transmission Date: 20160815
  Serious: Yes (Life-Threatening, Hospitalization, Other)
  Sender: FDA-Public Use
  Company Number: PHHY2016VE075696

PATIENT
  Age: 75 Year
  Sex: Female

DRUGS (7)
  1. REGULIP//ROSUVASTATIN CALCIUM [Concomitant]
     Indication: PRODUCT USED FOR UNKNOWN INDICATION
     Dosage: 10 MG, QD
     Route: 065
  2. EUTIROX [Concomitant]
     Active Substance: LEVOTHYROXINE SODIUM
     Indication: THYROID DISORDER
     Dosage: 50 MG, QD
     Route: 065
     Dates: start: 2011
  3. DIOVAN HCT [Suspect]
     Active Substance: HYDROCHLOROTHIAZIDE\VALSARTAN
     Indication: HYPERTENSION
     Dosage: 1 DF, QD
     Route: 048
     Dates: start: 2011
  4. CONCOR [Concomitant]
     Active Substance: BISOPROLOL FUMARATE
     Indication: HYPERTENSION
     Dosage: 1.25 MG, QD
     Route: 065
     Dates: start: 2011
  5. DAFLON (DIOSMIN) [Concomitant]
     Active Substance: DIOSMIN
     Indication: PERIPHERAL VASCULAR DISORDER
     Dosage: 500 MG, QD
     Route: 065
     Dates: start: 2011
  6. JANUVIA [Concomitant]
     Active Substance: SITAGLIPTIN PHOSPHATE
     Indication: PRODUCT USED FOR UNKNOWN INDICATION
     Dosage: 50 MG, QD
     Route: 065
  7. HYFLON [Concomitant]
     Indication: PERIPHERAL VASCULAR DISORDER
     Dosage: 200 MG, QD
     Route: 065

REACTIONS (10)
  - Hypotonia [Recovering/Resolving]
  - Discomfort [Recovering/Resolving]
  - Blood pressure increased [Recovering/Resolving]
  - Vaginal prolapse [Recovering/Resolving]
  - Terminal state [Recovering/Resolving]
  - Infarction [Recovering/Resolving]
  - Depressed mood [Recovering/Resolving]
  - Malaise [Recovering/Resolving]
  - Head discomfort [Recovering/Resolving]
  - Dizziness [Recovering/Resolving]

NARRATIVE: CASE EVENT DATE: 20160614
